FAERS Safety Report 20439908 (Version 1)
Quarter: 2022Q1

REPORT INFORMATION
  Report Type: Spontaneous
  Country: CN (occurrence: CN)
  Receive Date: 20220207
  Receipt Date: 20220207
  Transmission Date: 20220423
  Serious: Yes (Other)
  Sender: FDA-Public Use
  Company Number: CN-PFIZER INC-202200157705

PATIENT
  Age: 41 Year
  Sex: Female
  Weight: 79.5 kg

DRUGS (3)
  1. CARBOPROST TROMETHAMINE [Suspect]
     Active Substance: CARBOPROST TROMETHAMINE
     Indication: Uterine contractions abnormal
     Dosage: 250 UG, 1X/DAY
     Route: 019
     Dates: start: 20220114, end: 20220114
  2. SODIUM CHLORIDE [Concomitant]
     Active Substance: SODIUM CHLORIDE
     Indication: Uterine contractions abnormal
     Dosage: 500 ML, 1X/DAY
     Route: 041
     Dates: start: 20220114, end: 20220114
  3. OXYTOCIN [Concomitant]
     Active Substance: OXYTOCIN
     Indication: Uterine contractions abnormal
     Dosage: 20 IU, 1X/DAY
     Route: 041
     Dates: start: 20220114, end: 20220114

REACTIONS (4)
  - Diarrhoea [Recovered/Resolved]
  - Vomiting [Recovered/Resolved]
  - Faeces discoloured [Recovered/Resolved]
  - Off label use [Recovered/Resolved]

NARRATIVE: CASE EVENT DATE: 20220114
